FAERS Safety Report 15916369 (Version 1)
Quarter: 2019Q1

REPORT INFORMATION
  Report Type: Spontaneous
  Country: FR (occurrence: FR)
  Receive Date: 20190204
  Receipt Date: 20190204
  Transmission Date: 20190417
  Serious: Yes (Other)
  Sender: FDA-Public Use
  Company Number: FR-AMGEN-FRASP2019016655

PATIENT
  Age: 46 Year
  Sex: Female

DRUGS (3)
  1. PROCORALAN [Suspect]
     Active Substance: IVABRADINE
     Indication: POSTURAL ORTHOSTATIC TACHYCARDIA SYNDROME
     Dosage: 15 MG, QD
     Route: 048
     Dates: start: 2016, end: 20181207
  2. JOSACINE [Interacting]
     Active Substance: JOSAMYCIN
     Indication: BRONCHITIS
     Dosage: 1 DF, QD
     Route: 048
     Dates: start: 20181205, end: 20181207
  3. SINGULAIR [Concomitant]
     Active Substance: MONTELUKAST SODIUM
     Indication: ASTHMA
     Dosage: UNK
     Route: 048

REACTIONS (3)
  - Off label use [Unknown]
  - Bradycardia [Recovered/Resolved]
  - Drug interaction [Recovered/Resolved]

NARRATIVE: CASE EVENT DATE: 2016
